FAERS Safety Report 5418149-3 (Version None)
Quarter: 2007Q3

REPORT INFORMATION
  Report Type: 
  Country: None (occurrence: None)
  Receive Date: 20070817
  Receipt Date: 20070807
  Transmission Date: 20080115
  Serious: Yes (Hospitalization)
  Sender: FDA-Public Use
  Company Number: US-ELI_LILLY_AND_COMPANY-US200708001514

PATIENT
  Age: 75 Year
  Sex: Male

DRUGS (2)
  1. HUMALOG [Suspect]
     Indication: DIABETES MELLITUS
  2. HUMULIN N [Suspect]
     Indication: DIABETES MELLITUS

REACTIONS (11)
  - ARTERIAL STENT INSERTION [None]
  - BLISTER [None]
  - CARDIAC PACEMAKER INSERTION [None]
  - DIABETIC RETINOPATHY [None]
  - IMPLANTABLE DEFIBRILLATOR INSERTION [None]
  - NEUROPATHY [None]
  - NEUROPATHY PERIPHERAL [None]
  - PARKINSON'S DISEASE [None]
  - SENSORY LOSS [None]
  - TREMOR [None]
  - WOUND [None]
